FAERS Safety Report 24911824 (Version 1)
Quarter: 2025Q1

REPORT INFORMATION
  Report Type: Spontaneous
  Country: US (occurrence: US)
  Receive Date: 20250131
  Receipt Date: 20250131
  Transmission Date: 20250409
  Serious: No
  Sender: PFIZER
  Company Number: US-PFIZER INC-202500020458

PATIENT
  Age: 33 Year
  Sex: Female

DRUGS (5)
  1. VELSIPITY [Suspect]
     Active Substance: ETRASIMOD ARGININE
     Indication: Colitis ulcerative
     Dosage: 2 MG ONCE DAILY
  2. MELATONIN [Concomitant]
     Active Substance: MELATONIN
     Dosage: 25 MG HS (AT BEDTIME) ONCE DAILY
  3. GEODON [Concomitant]
     Active Substance: ZIPRASIDONE HYDROCHLORIDE\ZIPRASIDONE MESYLATE
     Dosage: 60 MG BID (TWICE A DAY)
  4. WELLBUTRIN [Concomitant]
     Active Substance: BUPROPION HYDROCHLORIDE
     Dosage: 300 MG QD (EVERYDAY)
  5. BUSPIRONE [Concomitant]
     Active Substance: BUSPIRONE HYDROCHLORIDE
     Dosage: 5MG BID (TWICE A DAY)

REACTIONS (2)
  - Sleep paralysis [Unknown]
  - Insomnia [Unknown]
